FAERS Safety Report 7849989-9 (Version None)
Quarter: 2011Q4

REPORT INFORMATION
  Report Type: 
  Country: None (occurrence: None)
  Receive Date: 20111021
  Receipt Date: 20111014
  Transmission Date: 20120403
  Serious: Yes (Death, Hospitalization, Other)
  Sender: FDA-Public Use
  Company Number: AUR-APL-2011-05392

PATIENT
  Age: 78 Year
  Sex: Female

DRUGS (6)
  1. LERCANIDIPINE [Concomitant]
  2. IBUPROFEN [Concomitant]
  3. ACENOCOUMAROL (ACENOCOUMAROL) [Concomitant]
  4. METFORMIN HCL [Suspect]
     Indication: PRODUCT USED FOR UNKNOWN INDICATION
     Dosage: 2550 MG (850 MG, 1 IN 8 HR),
  5. LISINOPRIL AND HYDROCHLOROTHIAZIDE (PRINZIDE /00977901/) [Concomitant]
  6. GLIPIZIDE [Concomitant]

REACTIONS (10)
  - MENINGITIS PNEUMOCOCCAL [None]
  - POOR PERIPHERAL CIRCULATION [None]
  - BONE PAIN [None]
  - COMA [None]
  - GENERAL PHYSICAL HEALTH DETERIORATION [None]
  - GASTROINTESTINAL DISORDER [None]
  - LACTIC ACIDOSIS [None]
  - HYPOTENSION [None]
  - HAEMODIALYSIS [None]
  - LUNG INFILTRATION [None]
